FAERS Safety Report 24651573 (Version 1)
Quarter: 2024Q4

REPORT INFORMATION
  Report Type: Spontaneous
  Country: US (occurrence: US)
  Receive Date: 20241122
  Receipt Date: 20241122
  Transmission Date: 20250115
  Serious: Yes (Hospitalization)
  Sender: HIKMA
  Company Number: US-HIKMA PHARMACEUTICALS USA INC.-US-H14001-24-10666

PATIENT
  Age: 84 Year
  Sex: Male
  Weight: 118.6 kg

DRUGS (5)
  1. ABIRATERONE [Suspect]
     Active Substance: ABIRATERONE\ABIRATERONE ACETATE
     Indication: Prostate cancer
     Dosage: 1000 MILLIGRAM, QD
     Route: 065
     Dates: start: 20240815
  2. TALAZOPARIB [Suspect]
     Active Substance: TALAZOPARIB
     Indication: Prostate cancer
     Dosage: 1 MILLIGRAM, QD
     Route: 065
     Dates: start: 20240815
  3. DULOXETINE [Concomitant]
     Active Substance: DULOXETINE
     Indication: Sciatica
     Dosage: UNK
     Route: 048
     Dates: start: 20241015
  4. MORPHINE [Concomitant]
     Active Substance: MORPHINE
     Indication: Cancer pain
     Dosage: UNK
     Route: 048
     Dates: start: 20240815
  5. PREDNISONE [Concomitant]
     Active Substance: PREDNISONE
     Indication: Prostate cancer
     Dosage: UNK
     Route: 048
     Dates: start: 20240725

REACTIONS (2)
  - Presyncope [Not Recovered/Not Resolved]
  - Asthenia [Unknown]

NARRATIVE: CASE EVENT DATE: 20241022
